FAERS Safety Report 16363977 (Version 1)
Quarter: 2019Q2

REPORT INFORMATION
  Report Type: Spontaneous
  Country: AU (occurrence: AU)
  Receive Date: 20190528
  Receipt Date: 20190528
  Transmission Date: 20190711
  Serious: Yes (Hospitalization, Other)
  Sender: FDA-Public Use
  Company Number: AU-ELI_LILLY_AND_COMPANY-AU201905012575

PATIENT
  Age: 65 Year
  Sex: Male

DRUGS (4)
  1. ERBITUX [Suspect]
     Active Substance: CETUXIMAB
     Dosage: UNK, WEEKLY (1/W)
     Route: 065
     Dates: start: 20180625
  2. HYDROCORTISONE. [Concomitant]
     Active Substance: HYDROCORTISONE
     Indication: PREMEDICATION
     Dosage: UNK
     Route: 042
  3. ERBITUX [Suspect]
     Active Substance: CETUXIMAB
     Dosage: UNK, WEEKLY (1/W)
     Route: 065
  4. ERBITUX [Suspect]
     Active Substance: CETUXIMAB
     Indication: SQUAMOUS CELL CARCINOMA OF THE HYPOPHARYNX
     Dosage: UNK, WEEKLY (1/W)
     Route: 065
     Dates: start: 20180619

REACTIONS (7)
  - Tachycardia [Unknown]
  - Eye inflammation [Recovered/Resolved]
  - Hypotension [Unknown]
  - Oesophageal candidiasis [Unknown]
  - Malaise [Unknown]
  - Staphylococcal sepsis [Recovering/Resolving]
  - Skin reaction [Recovering/Resolving]

NARRATIVE: CASE EVENT DATE: 20180625
